FAERS Safety Report 4314999-5 (Version None)
Quarter: 2004Q1

REPORT INFORMATION
  Report Type: 
  Country: None (occurrence: None)
  Receive Date: 20040309
  Receipt Date: 20040223
  Transmission Date: 20041129
  Serious: Yes (Hospitalization)
  Sender: FDA-Public Use
  Company Number: RENA-10800

PATIENT
  Age: 52 Year
  Sex: Male

DRUGS (13)
  1. PHOSBLOCK - 250 MG TABLET [Suspect]
     Indication: HYPERPHOSPHATAEMIA
     Dosage: 1.5 G QD PO
     Route: 048
     Dates: start: 20030626, end: 20031021
  2. CALCIUM CARBONATE [Suspect]
     Indication: HYPOCALCAEMIA
     Dosage: 300 MG QD PO
     Route: 048
     Dates: start: 20020222
  3. ALLOPURINOL [Concomitant]
  4. FALECALCITRIOL [Concomitant]
  5. CILNIDIPINE [Concomitant]
  6. CALCIUM POLYSTYRENE SULFONATE [Concomitant]
  7. SENNOSIDE A, B [Concomitant]
  8. TEMOCAPRIL HYDROCHLORIDE [Concomitant]
  9. CANDESARTAN CILEXETIL [Concomitant]
  10. TRICHLORMETHIAZIDE [Concomitant]
  11. FUROSEMIDE [Concomitant]
  12. ASPIRIN [Concomitant]
  13. SENNOSIDE A, B CALCIUM SALT [Concomitant]

REACTIONS (1)
  - INTESTINAL OBSTRUCTION [None]
